FAERS Safety Report 20514358 (Version 1)
Quarter: 2022Q1

REPORT INFORMATION
  Report Type: Spontaneous
  Country: US (occurrence: US)
  Receive Date: 20220224
  Receipt Date: 20220224
  Transmission Date: 20220423
  Serious: No
  Sender: FDA-Public Use
  Company Number: US-VYERA PHARMACEUTICALS, LLC-2021VYE00039

PATIENT
  Age: 32 Year
  Sex: Female
  Weight: 58.957 kg

DRUGS (7)
  1. DARAPRIM [Suspect]
     Active Substance: PYRIMETHAMINE
     Indication: Congenital toxoplasmosis
     Dosage: 50 MG, 2X/DAY
     Route: 048
     Dates: start: 202108, end: 202108
  2. DARAPRIM [Suspect]
     Active Substance: PYRIMETHAMINE
     Dosage: 50 MG, 1X/DAY
     Route: 048
     Dates: start: 202108
  3. LEUCOVORIN [Concomitant]
     Active Substance: LEUCOVORIN
     Dosage: UNK, 1X/DAY
  4. SULFADIAZINE [Concomitant]
     Active Substance: SULFADIAZINE
     Dosage: UNK UNK, 1X/DAY
  5. ASPIRIN [Concomitant]
     Active Substance: ASPIRIN
     Dosage: UNK, 1X/DAY
     Dates: start: 202108
  6. FOLIC ACID [Concomitant]
     Active Substance: FOLIC ACID
     Dosage: UNK, 1X/DAY
     Dates: start: 2021
  7. T4 THYROID SUPPLEMENT [Concomitant]
     Dosage: UNK, 1X/DAY
     Dates: start: 202108

REACTIONS (4)
  - Headache [Not Recovered/Not Resolved]
  - Nausea [Recovering/Resolving]
  - Maternal exposure during pregnancy [Not Recovered/Not Resolved]
  - Vomiting [Recovering/Resolving]

NARRATIVE: CASE EVENT DATE: 20210801
